FAERS Safety Report 6287568-8 (Version None)
Quarter: 2009Q3

REPORT INFORMATION
  Report Type: 
  Country: None (occurrence: None)
  Receive Date: 20090727
  Receipt Date: 20090713
  Transmission Date: 20100115
  Serious: Yes (Hospitalization)
  Sender: FDA-Public Use
  Company Number: 230366K08USA

PATIENT
  Age: 32 Year
  Sex: Male
  Weight: 73 kg

DRUGS (2)
  1. REBIF [Suspect]
     Indication: MULTIPLE SCLEROSIS
     Dosage: 44 MCG, 3 IN 1 WEEKS, SUBCUTANEOUS
     Route: 058
     Dates: start: 20030601, end: 20080527
  2. REBIF [Suspect]
     Indication: MULTIPLE SCLEROSIS
     Dosage: 44 MCG, 3 IN 1 WEEKS, SUBCUTANEOUS
     Route: 058
     Dates: start: 20080801

REACTIONS (9)
  - BACK PAIN [None]
  - CONDITION AGGRAVATED [None]
  - HYPERHIDROSIS [None]
  - INJECTION SITE ABSCESS [None]
  - MULTIPLE SCLEROSIS [None]
  - NAUSEA [None]
  - SEPSIS [None]
  - VOMITING [None]
  - WRONG TECHNIQUE IN DRUG USAGE PROCESS [None]
